FAERS Safety Report 8929422 (Version 1)
Quarter: 2012Q4

REPORT INFORMATION
  Report Type: Spontaneous
  Country: US (occurrence: None)
  Receive Date: 20121119
  Receipt Date: 20121119
  Transmission Date: 20130627
  Serious: Yes (Hospitalization)
  Sender: FDA-Public Use
  Company Number: ACO_32928_2012

PATIENT
  Age: 34 Year
  Sex: Female

DRUGS (1)
  1. AMPYRA (DALFAMPRIDINE) TABLET, 10MG [Suspect]
     Dates: start: 201203

REACTIONS (2)
  - Pulmonary embolism [None]
  - Pain in extremity [None]
